FAERS Safety Report 8359128-6 (Version None)
Quarter: 2012Q2

REPORT INFORMATION
  Report Type: 
  Country: None (occurrence: None)
  Receive Date: 20120511
  Receipt Date: 20120430
  Transmission Date: 20120825
  Serious: Yes (Hospitalization)
  Sender: FDA-Public Use
  Company Number: 20123SP023495

PATIENT
  Age: 76 Year
  Sex: Female

DRUGS (6)
  1. CARBAMAZEPINE [Concomitant]
  2. FOLIC ACID [Concomitant]
  3. RIBAVIRIN [Suspect]
     Indication: PRODUCT USED FOR UNKNOWN INDICATION
     Dosage: UNK
  4. PEGINTERFERON ALFA-2B [Suspect]
     Indication: HEPATITIS C
     Dosage: 100 MCG, UNK
     Dates: start: 20120229
  5. LEVITIROXIN [Concomitant]
  6. FUROSEMIDE [Concomitant]

REACTIONS (4)
  - RENAL DISORDER [None]
  - CHEST PAIN [None]
  - PYREXIA [None]
  - HAEMODIALYSIS [None]
